FAERS Safety Report 8811293 (Version 1)
Quarter: 2012Q4

REPORT INFORMATION
  Report Type: 
  Country: US (occurrence: US)
  Receive Date: 20120927
  Receipt Date: 20120927
  Transmission Date: 20130627
  Serious: No
  Sender: FDA-Public Use
  Company Number: US-B.I. PHARMACEUTICALS,INC./RIDGEFIELD-2012-BP-23321BP

PATIENT
  Age: 71 Year
  Sex: Female
  Weight: 69 kg

DRUGS (4)
  1. PRADAXA [Suspect]
     Indication: ATRIAL FIBRILLATION
     Dosage: 300 mg
     Route: 048
     Dates: start: 20110802
  2. SIMVASTATIN [Concomitant]
     Indication: HYPERTENSION
     Dosage: 20 mg
     Route: 048
     Dates: start: 2008
  3. HCTZ [Concomitant]
     Indication: HYPERTENSION
     Route: 048
     Dates: start: 2010
  4. ENALAPRIL [Concomitant]
     Indication: CARDIAC DISORDER
     Dosage: 10 mg
     Route: 048
     Dates: start: 2008

REACTIONS (4)
  - Chest pain [Not Recovered/Not Resolved]
  - Blood pressure fluctuation [Not Recovered/Not Resolved]
  - Hypertension [Recovered/Resolved]
  - Hypotension [Not Recovered/Not Resolved]
